FAERS Safety Report 8525161-4 (Version None)
Quarter: 2012Q3

REPORT INFORMATION
  Report Type: 
  Country: None (occurrence: None)
  Receive Date: 20120720
  Receipt Date: 20120716
  Transmission Date: 20120928
  Serious: Yes (Other)
  Sender: FDA-Public Use
  Company Number: PHHY2012BR061806

PATIENT
  Sex: Female

DRUGS (2)
  1. PREDNISONE TAB [Concomitant]
     Dosage: UNK UKN, UNK
     Route: 048
  2. MYFORTIC [Suspect]
     Dosage: 1 TABLET EVERY 12 HOURS, Q12H
     Route: 048

REACTIONS (3)
  - MOUTH INJURY [None]
  - SKIN DISORDER [None]
  - HEAD INJURY [None]
